FAERS Safety Report 5809240-8 (Version None)
Quarter: 2008Q3

REPORT INFORMATION
  Report Type: 
  Country: None (occurrence: None)
  Receive Date: 20080714
  Receipt Date: 20080702
  Transmission Date: 20090109
  Serious: Yes (Other)
  Sender: FDA-Public Use
  Company Number: US-PFIZER INC-2008056568

PATIENT
  Age: 27 Year
  Sex: Male
  Weight: 79.4 kg

DRUGS (1)
  1. CHANTIX [Suspect]
     Indication: SMOKING CESSATION THERAPY

REACTIONS (4)
  - AGGRESSION [None]
  - DELUSION [None]
  - PARANOIA [None]
  - PSYCHOTIC DISORDER [None]
